FAERS Safety Report 4865103-6 (Version None)
Quarter: 2005Q4

REPORT INFORMATION
  Report Type: 
  Country: None (occurrence: None)
  Receive Date: 20051223
  Receipt Date: 20051215
  Transmission Date: 20060501
  Serious: Yes (Hospitalization)
  Sender: FDA-Public Use
  Company Number: FR-AVENTIS-200514159FR

PATIENT
  Age: 46 Year
  Sex: Male

DRUGS (20)
  1. PYOSTACINE [Suspect]
     Indication: DEVICE RELATED INFECTION
     Route: 048
     Dates: start: 20051017, end: 20051122
  2. PYOSTACINE [Suspect]
     Indication: STAPHYLOCOCCAL INFECTION
     Route: 048
     Dates: start: 20051017, end: 20051122
  3. LOVENOX [Suspect]
     Dates: start: 20050913, end: 20051004
  4. LOVENOX [Suspect]
     Dates: start: 20051118
  5. TAVANIC [Suspect]
     Indication: DEVICE RELATED INFECTION
     Route: 048
     Dates: start: 20050926, end: 20051113
  6. TAVANIC [Suspect]
     Indication: STAPHYLOCOCCAL INFECTION
     Route: 048
     Dates: start: 20050926, end: 20051113
  7. FRAXODI [Suspect]
     Route: 058
     Dates: start: 20051020, end: 20051118
  8. LEXOMIL [Concomitant]
     Route: 048
  9. NEURONTIN [Concomitant]
  10. MOPRAL [Concomitant]
  11. DURAGESIC-100 [Concomitant]
     Route: 062
  12. RIVOTRIL [Concomitant]
     Route: 048
  13. MEPRONIZINE [Concomitant]
     Route: 048
  14. ORBENINE [Concomitant]
     Indication: DEVICE RELATED INFECTION
     Dates: start: 20050914, end: 20051017
  15. ORBENINE [Concomitant]
     Indication: STAPHYLOCOCCAL INFECTION
     Dates: start: 20050914, end: 20051017
  16. FUCIDINE CAP [Concomitant]
     Dates: start: 20051114
  17. OFLOCET [Concomitant]
     Indication: DEVICE RELATED INFECTION
     Dates: start: 20051121
  18. OFLOCET [Concomitant]
     Indication: STAPHYLOCOCCAL INFECTION
     Dates: start: 20051121
  19. RIFADIN [Concomitant]
     Indication: DEVICE RELATED INFECTION
     Dates: start: 20050914, end: 20050926
  20. RIFADIN [Concomitant]
     Indication: STAPHYLOCOCCAL INFECTION
     Dates: start: 20050914, end: 20050926

REACTIONS (3)
  - EOSINOPHILIA [None]
  - PRURITUS [None]
  - SUBCUTANEOUS NODULE [None]
